FAERS Safety Report 14556220 (Version 2)
Quarter: 2018Q1

REPORT INFORMATION
  Report Type: Spontaneous
  Country: US (occurrence: US)
  Receive Date: 20180221
  Receipt Date: 20180301
  Transmission Date: 20180509
  Serious: No
  Sender: FDA-Public Use
  Company Number: US-AMGEN-USASP2018022819

PATIENT
  Age: 19 Year
  Sex: Female

DRUGS (1)
  1. ENBREL [Suspect]
     Active Substance: ETANERCEPT
     Indication: FAMILIAL MEDITERRANEAN FEVER
     Dosage: 50 MG, QWK
     Route: 065
     Dates: start: 2014

REACTIONS (7)
  - Gait disturbance [Unknown]
  - Chest pain [Unknown]
  - Infection [Unknown]
  - Product storage error [Unknown]
  - Arthralgia [Unknown]
  - Off label use [Unknown]
  - Wrong technique in product usage process [Unknown]

NARRATIVE: CASE EVENT DATE: 2014
